FAERS Safety Report 25045325 (Version 2)
Quarter: 2025Q1

REPORT INFORMATION
  Report Type: Spontaneous
  Country: FR (occurrence: FR)
  Receive Date: 20250306
  Receipt Date: 20250317
  Transmission Date: 20250409
  Serious: Yes (Hospitalization, Other)
  Sender: CADILA
  Company Number: FR-CPL-005072

PATIENT
  Age: 16 Year
  Sex: Female

DRUGS (8)
  1. PAROXETINE [Interacting]
     Active Substance: PAROXETINE
     Indication: Product used for unknown indication
  2. VENLAFAXINE [Interacting]
     Active Substance: VENLAFAXINE HYDROCHLORIDE
     Indication: Product used for unknown indication
  3. CITALOPRAM [Interacting]
     Active Substance: CITALOPRAM
     Indication: Product used for unknown indication
  4. ESCITALOPRAM [Interacting]
     Active Substance: ESCITALOPRAM OXALATE
     Indication: Product used for unknown indication
  5. SERTRALINE [Interacting]
     Active Substance: SERTRALINE HYDROCHLORIDE
     Indication: Product used for unknown indication
  6. TRIHEXYPHENIDYL [Interacting]
     Active Substance: TRIHEXYPHENIDYL
     Indication: Product used for unknown indication
  7. RISPERIDONE [Concomitant]
     Active Substance: RISPERIDONE
     Indication: Product used for unknown indication
  8. CETIRIZINE [Concomitant]
     Active Substance: CETIRIZINE HYDROCHLORIDE
     Indication: Product used for unknown indication

REACTIONS (15)
  - Wrong technique in product usage process [Unknown]
  - Cognitive disorder [Unknown]
  - Confusional state [Unknown]
  - Headache [Unknown]
  - Toxicity to various agents [Unknown]
  - Drug interaction [Unknown]
  - Mydriasis [Unknown]
  - Intentional product misuse [Unknown]
  - Disorganised speech [Unknown]
  - Sinus tachycardia [Unknown]
  - Hallucinations, mixed [Unknown]
  - Aspartate aminotransferase increased [Unknown]
  - Gamma-glutamyltransferase increased [Unknown]
  - Disorientation [Recovering/Resolving]
  - Hyperkalaemia [Unknown]
